FAERS Safety Report 20554483 (Version 2)
Quarter: 2022Q1

REPORT INFORMATION
  Report Type: Spontaneous
  Country: US (occurrence: US)
  Receive Date: 20220304
  Receipt Date: 20220324
  Transmission Date: 20220424
  Serious: Yes (Death, Hospitalization)
  Sender: FDA-Public Use
  Company Number: US-MORPHOSYS US-2022-MOR001636-US

PATIENT
  Age: 54 Year
  Sex: Male
  Weight: 75.283 kg

DRUGS (11)
  1. MONJUVI [Suspect]
     Active Substance: TAFASITAMAB-CXIX
     Indication: Diffuse large B-cell lymphoma
     Dosage: 1000 MILLIGRAM C1D1, 4, 8, 15, 22 AND C2D1, 8, 15, 22
     Dates: start: 20210928
  2. MONJUVI [Suspect]
     Active Substance: TAFASITAMAB-CXIX
     Dosage: 1000 MILLIGRAM C1D1, 4, 8, 15, 22 AND C2D1, 8, 15, 22
     Dates: start: 20211001
  3. MONJUVI [Suspect]
     Active Substance: TAFASITAMAB-CXIX
     Dosage: 1000 MILLIGRAM C1D1, 4, 8, 15, 22 AND C2D1, 8, 15, 22
     Dates: start: 20211005
  4. MONJUVI [Suspect]
     Active Substance: TAFASITAMAB-CXIX
     Dosage: 1000 MILLIGRAM C1D1, 4, 8, 15, 22 AND C2D1, 8, 15, 22
     Dates: start: 20211012
  5. MONJUVI [Suspect]
     Active Substance: TAFASITAMAB-CXIX
     Dosage: 1000 MILLIGRAM C1D1, 4, 8, 15, 22 AND C2D1, 8, 15, 22
     Dates: start: 20211020
  6. MONJUVI [Suspect]
     Active Substance: TAFASITAMAB-CXIX
     Dosage: 1000 MILLIGRAM C1D1, 4, 8, 15, 22 AND C2D1, 8, 15, 22
     Dates: start: 20211105
  7. MONJUVI [Suspect]
     Active Substance: TAFASITAMAB-CXIX
     Dosage: 1000 MILLIGRAM C1D1, 4, 8, 15, 22 AND C2D1, 8, 15, 22
     Dates: start: 20211112
  8. MONJUVI [Suspect]
     Active Substance: TAFASITAMAB-CXIX
     Dosage: 1000 MILLIGRAM C1D1, 4, 8, 15, 22 AND C2D1, 8, 15, 22
     Dates: start: 20211119, end: 20211119
  9. REVLIMID [Concomitant]
     Active Substance: LENALIDOMIDE
     Indication: Product used for unknown indication
     Dosage: 15 MILLIGRAM
  10. LEVAQUIN [Concomitant]
     Active Substance: LEVOFLOXACIN
     Indication: Product used for unknown indication
  11. AUGMENTIN [Concomitant]
     Active Substance: AMOXICILLIN\CLAVULANATE POTASSIUM
     Indication: Product used for unknown indication
     Dosage: UNK

REACTIONS (3)
  - Pneumonia [Fatal]
  - Febrile neutropenia [Unknown]
  - Neutropenia [Recovered/Resolved]

NARRATIVE: CASE EVENT DATE: 20211019
